FAERS Safety Report 9508980 (Version 2)
Quarter: 2014Q3

REPORT INFORMATION
  Report Type: Spontaneous
  Country: US (occurrence: US)
  Receive Date: 20130909
  Receipt Date: 20140908
  Transmission Date: 20150326
  Serious: No
  Sender: FDA-Public Use
  Company Number: US-BRISTOL-MYERS SQUIBB COMPANY-19056613

PATIENT
  Age: 81 Year
  Sex: Male
  Weight: 71.65 kg

DRUGS (6)
  1. TYLENOL [Concomitant]
     Active Substance: ACETAMINOPHEN
  2. ZOLOFT [Concomitant]
     Active Substance: SERTRALINE HYDROCHLORIDE
  3. ABILIFY [Suspect]
     Active Substance: ARIPIPRAZOLE
     Indication: DEPRESSION
     Dosage: LAST DOSE: JUN2013.?THERAPY START DOSE: 2MG.
     Dates: start: 201111
  4. REMERON [Concomitant]
     Active Substance: MIRTAZAPINE
  5. RISPERIDONE. [Concomitant]
     Active Substance: RISPERIDONE
  6. ABILIFY [Suspect]
     Active Substance: ARIPIPRAZOLE
     Indication: ANXIETY
     Dosage: LAST DOSE: JUN2013.?THERAPY START DOSE: 2MG.
     Dates: start: 201111

REACTIONS (2)
  - Weight decreased [Unknown]
  - Aggression [Unknown]

NARRATIVE: CASE EVENT DATE: 201111
